FAERS Safety Report 7476782-1 (Version None)
Quarter: 2011Q2

REPORT INFORMATION
  Report Type: 
  Country: None (occurrence: None)
  Receive Date: 20110512
  Receipt Date: 20110510
  Transmission Date: 20111010
  Serious: Yes (Other)
  Sender: FDA-Public Use
  Company Number: US-PFIZER INC-2011100370

PATIENT
  Sex: Male
  Weight: 66 kg

DRUGS (1)
  1. SOLU-MEDROL [Suspect]
     Indication: INJURY
     Dosage: 125 MG, UNK
     Route: 042
     Dates: start: 20110417, end: 20110417

REACTIONS (1)
  - RESPIRATORY DISTRESS [None]
